FAERS Safety Report 10408655 (Version 1)
Quarter: 2014Q3

REPORT INFORMATION
  Report Type: Spontaneous
  Country: GB (occurrence: None)
  Receive Date: 20140821
  Receipt Date: 20140821
  Transmission Date: 20150326
  Serious: Yes (Disabling)
  Sender: FDA-Public Use
  Company Number: AUR-APL-2014-08744

PATIENT
  Age: 76 Year
  Sex: Female
  Weight: 80 kg

DRUGS (5)
  1. BETAMETHASONE VALERATE (BETAMETHASONE VALERATE) [Concomitant]
  2. SIMVASTATIN (SIMVASTATIN) [Suspect]
     Active Substance: SIMVASTATIN
     Indication: PRODUCT USED FOR UNKNOWN INDICATION
     Dates: start: 20140407
  3. INDAPAMIDE (INDAPAMIDE) [Concomitant]
     Active Substance: INDAPAMIDE
  4. CHLORAMPHENICOL (CHLORAMPHENICOL) [Concomitant]
  5. SODIUM CROMOGLICATE (CROMOGLICATE SODIUM) [Concomitant]

REACTIONS (4)
  - Dizziness [None]
  - Muscle spasms [None]
  - Pain [None]
  - Pain in extremity [None]

NARRATIVE: CASE EVENT DATE: 20140804
